FAERS Safety Report 24646638 (Version 1)
Quarter: 2024Q4

REPORT INFORMATION
  Report Type: Spontaneous
  Country: US (occurrence: US)
  Receive Date: 20241121
  Receipt Date: 20241121
  Transmission Date: 20250114
  Serious: Yes (Hospitalization, Other)
  Sender: BRISTOL-MYERS SQUIBB COMPANY
  Company Number: US-BRISTOL-MYERS SQUIBB COMPANY-2024-179111

PATIENT
  Age: 76 Year
  Sex: Male
  Weight: 71.3 kg

DRUGS (6)
  1. OPDIVO [Suspect]
     Active Substance: NIVOLUMAB
     Indication: Renal cancer
  2. OPDIVO [Suspect]
     Active Substance: NIVOLUMAB
     Indication: Follicular lymphoma
  3. CABOMETYX [Suspect]
     Active Substance: CABOZANTINIB S-MALATE
     Indication: Renal cancer
  4. CABOMETYX [Suspect]
     Active Substance: CABOZANTINIB S-MALATE
     Indication: Follicular lymphoma
  5. NEURONTIN [Concomitant]
     Active Substance: GABAPENTIN
     Indication: Neuralgia
     Dosage: TAKE 1 CAPSULE (100 MGTOTAL)BY MOUTH 2 (TWO) TIMES A DAY
     Route: 048
  6. TIVOZANIB [Concomitant]
     Active Substance: TIVOZANIB

REACTIONS (12)
  - Tooth disorder [Unknown]
  - Metastatic renal cell carcinoma [Unknown]
  - Fall [Unknown]
  - Rhabdomyolysis [Unknown]
  - Acute kidney injury [Unknown]
  - Wound secretion [Unknown]
  - Back pain [Unknown]
  - Decreased appetite [Unknown]
  - Joint swelling [Unknown]
  - Joint injury [Unknown]
  - Joint range of motion decreased [Unknown]
  - Head injury [Unknown]
